FAERS Safety Report 20177007 (Version 1)
Quarter: 2021Q4

REPORT INFORMATION
  Report Type: Spontaneous
  Country: US (occurrence: None)
  Receive Date: 20211213
  Receipt Date: 20211213
  Transmission Date: 20220303
  Serious: Yes (Hospitalization)
  Sender: FDA-Public Use
  Company Number: None

PATIENT
  Sex: Male

DRUGS (1)
  1. TEMOZOLOMIDE [Suspect]
     Active Substance: TEMOZOLOMIDE
     Indication: Brain neoplasm malignant
     Dosage: OTHER FREQUENCY : 5 DAYS EVERY 28 DA;?
     Route: 048
     Dates: start: 20210122

REACTIONS (4)
  - Deep vein thrombosis [None]
  - Pulmonary venous thrombosis [None]
  - Fall [None]
  - Seizure [None]
